FAERS Safety Report 4315060-6 (Version None)
Quarter: 2004Q1

REPORT INFORMATION
  Report Type: 
  Country: None (occurrence: None)
  Receive Date: 20040310
  Receipt Date: 20040225
  Transmission Date: 20041129
  Serious: Yes (Hospitalization, Other)
  Sender: FDA-Public Use
  Company Number: PHBS2004JP02831

PATIENT
  Age: 81 Year
  Sex: Female
  Weight: 37 kg

DRUGS (3)
  1. LOPRESSOR [Suspect]
  2. HEPARIN [Concomitant]
  3. NAFAMOSTAT [Concomitant]

REACTIONS (5)
  - DIALYSIS [None]
  - NEUTROPENIA [None]
  - SHUNT OCCLUSION [None]
  - SURGERY [None]
  - THROMBOCYTOPENIA [None]
